FAERS Safety Report 5103981-6 (Version None)
Quarter: 2006Q3

REPORT INFORMATION
  Report Type: 
  Country: None (occurrence: None)
  Receive Date: 20060911
  Receipt Date: 20060828
  Transmission Date: 20061208
  Serious: Yes (Hospitalization)
  Sender: FDA-Public Use
  Company Number: 2006098996

PATIENT
  Age: 71 Year
  Sex: Male
  Weight: 76.8 kg

DRUGS (8)
  1. SUTENT [Suspect]
     Indication: RENAL CELL CARCINOMA STAGE UNSPECIFIED
     Dosage: 37.5 MG (37.5 MG, INTERVAL: 4 WEEKS ON 2 WEEKS OFF), ORAL
     Route: 048
     Dates: start: 20060301
  2. RABEPRAZOLE SODIUM [Concomitant]
  3. ALLOPURINOL [Concomitant]
  4. ATORVASTATIN [Concomitant]
  5. HYDROCORTISONE [Concomitant]
  6. AMLODIPINE [Concomitant]
  7. ATENOLOL [Concomitant]
  8. FUROSEMIDE [Concomitant]

REACTIONS (5)
  - HYPOCALCAEMIA [None]
  - HYPOMAGNESAEMIA [None]
  - MUSCLE SPASMS [None]
  - PARAESTHESIA [None]
  - RENAL IMPAIRMENT [None]
